FAERS Safety Report 9648463 (Version 1)
Quarter: 2013Q4

REPORT INFORMATION
  Report Type: Spontaneous
  Country: US (occurrence: None)
  Receive Date: 20131024
  Receipt Date: 20131024
  Transmission Date: 20140711
  Serious: Yes (Hospitalization)
  Sender: FDA-Public Use
  Company Number: 2013UCU075000337

PATIENT
  Age: 61 Year
  Sex: Female
  Weight: 89 kg

DRUGS (18)
  1. IFOSFAMIDE [Suspect]
     Indication: CROHN^S DISEASE
  2. DOXORUBICIN [Concomitant]
  3. CALCIUM CARBONATE [Concomitant]
  4. VITAMIN D NOS [Concomitant]
  5. CIPROFLOXACIN [Concomitant]
  6. DEXAMETHASONE [Concomitant]
  7. DOCUSATE SODIUM [Concomitant]
  8. LORAZEPAM [Concomitant]
  9. MESNA [Concomitant]
  10. VITAMINS NOS [Concomitant]
  11. ONDANSETRON [Concomitant]
  12. PEGFILGRASTIM [Concomitant]
  13. OXYBUTYNIN [Concomitant]
  14. POTASSIUM CHLORIDE [Concomitant]
  15. PROCHLORPERAZINE [Concomitant]
  16. MULTIVITAMINS [Concomitant]
  17. BUDESONIDE [Concomitant]
  18. AZATHIOPRINE [Concomitant]

REACTIONS (3)
  - Tremor [None]
  - Gait disturbance [None]
  - Mental status changes [None]
